FAERS Safety Report 5267091-X (Version None)
Quarter: 2007Q1

REPORT INFORMATION
  Report Type: 
  Country: None (occurrence: None)
  Receive Date: 20070316
  Receipt Date: 20070302
  Transmission Date: 20070707
  Serious: Yes (Other)
  Sender: FDA-Public Use
  Company Number: PHBS2007FR04099

PATIENT
  Age: 55 Year
  Sex: Female

DRUGS (7)
  1. CYCLOSPORINE [Suspect]
     Indication: RENAL TRANSPLANT
     Dosage: 4.1-1.32 MG/KG/D
     Route: 065
     Dates: start: 20000701
  2. IMATINIB MESYLATE [Suspect]
     Indication: CHRONIC MYELOID LEUKAEMIA
     Dosage: 400 MG/D
     Route: 065
     Dates: start: 20020801, end: 20020101
  3. IMATINIB MESYLATE [Suspect]
     Dosage: 300 MG/D
     Route: 065
  4. MYCOPHENOLATE MOFETIL [Suspect]
     Indication: RENAL TRANSPLANT
     Dosage: UNK, UNK
     Route: 065
     Dates: end: 20030401
  5. ANTIDIABETICS [Concomitant]
     Route: 048
  6. INSULIN [Concomitant]
  7. AZATHIOPRINE [Suspect]
     Indication: RENAL TRANSPLANT
     Route: 065
     Dates: start: 20030401

REACTIONS (9)
  - BLOOD CREATININE INCREASED [None]
  - BREAST CANCER [None]
  - CHRONIC ALLOGRAFT NEPHROPATHY [None]
  - DIABETES MELLITUS INADEQUATE CONTROL [None]
  - DIARRHOEA [None]
  - KIDNEY TRANSPLANT REJECTION [None]
  - MASTECTOMY [None]
  - NEUTROPENIA [None]
  - RENAL IMPAIRMENT [None]
